FAERS Safety Report 6176247-3 (Version None)
Quarter: 2009Q2

REPORT INFORMATION
  Report Type: 
  Country: None (occurrence: None)
  Receive Date: 20090501
  Receipt Date: 20090424
  Transmission Date: 20091009
  Serious: No
  Sender: FDA-Public Use
  Company Number: B0557637A

PATIENT
  Age: 16 Year
  Sex: Female

DRUGS (3)
  1. RELENZA [Suspect]
     Indication: DRUG USE FOR UNKNOWN INDICATION
     Dosage: 10MG TWICE PER DAY
     Route: 055
  2. TOMIRON [Concomitant]
     Route: 048
  3. CALONAL [Concomitant]
     Route: 048

REACTIONS (3)
  - HYPOPHAGIA [None]
  - PURULENCE [None]
  - STOMATITIS [None]
